FAERS Safety Report 15336103 (Version 2)
Quarter: 2018Q3

REPORT INFORMATION
  Report Type: Spontaneous
  Country: US (occurrence: US)
  Receive Date: 20180830
  Receipt Date: 20180830
  Transmission Date: 20181010
  Serious: Yes (Other)
  Sender: FDA-Public Use
  Company Number: US-CELGENEUS-USA-20180807347

PATIENT
  Age: 46 Year
  Sex: Female

DRUGS (1)
  1. OTEZLA [Suspect]
     Active Substance: APREMILAST
     Indication: PRODUCT USED FOR UNKNOWN INDICATION
     Dosage: 60 MILLIGRAM
     Route: 048
     Dates: start: 20180801, end: 20180821

REACTIONS (4)
  - Suicidal ideation [Unknown]
  - Dissociation [Unknown]
  - Weight decreased [Unknown]
  - Judgement impaired [Unknown]

NARRATIVE: CASE EVENT DATE: 20180803
